FAERS Safety Report 6193883-9 (Version None)
Quarter: 2009Q2

REPORT INFORMATION
  Report Type: 
  Country: None (occurrence: None)
  Receive Date: 20090518
  Receipt Date: 20090507
  Transmission Date: 20091009
  Serious: Yes (Life-Threatening, Other)
  Sender: FDA-Public Use
  Company Number: BG-BAXTER-2009BH007827

PATIENT
  Age: 7 Year
  Sex: Male

DRUGS (10)
  1. OSMITROL INJECTION [Suspect]
     Indication: DEHYDRATION
     Route: 042
     Dates: start: 20090418, end: 20090421
  2. RINGER [Concomitant]
     Indication: DRUG USE FOR UNKNOWN INDICATION
     Route: 065
     Dates: start: 20090418, end: 20090421
  3. FLAVAMED [Concomitant]
     Indication: DRUG USE FOR UNKNOWN INDICATION
     Route: 042
     Dates: start: 20090418, end: 20090426
  4. NUROFEN [Concomitant]
     Indication: DRUG USE FOR UNKNOWN INDICATION
     Route: 042
     Dates: start: 20090418, end: 20090426
  5. DEXAMETHASONE 4MG TAB [Concomitant]
     Indication: DRUG USE FOR UNKNOWN INDICATION
     Route: 042
     Dates: start: 20090418, end: 20090420
  6. METHYLPREDNISOLONE 4MG TAB [Concomitant]
     Indication: DRUG USE FOR UNKNOWN INDICATION
     Route: 042
     Dates: start: 20090418, end: 20090420
  7. DIPYRONE INJ [Concomitant]
     Indication: DRUG USE FOR UNKNOWN INDICATION
     Route: 042
     Dates: start: 20090418, end: 20090420
  8. ALLERGOSAN [Concomitant]
     Indication: DRUG USE FOR UNKNOWN INDICATION
     Route: 042
     Dates: start: 20090418, end: 20090421
  9. FORTUM                                  /UNK/ [Concomitant]
     Indication: DRUG USE FOR UNKNOWN INDICATION
     Route: 042
     Dates: start: 20090421, end: 20090425
  10. URBASON [Concomitant]
     Indication: DRUG USE FOR UNKNOWN INDICATION
     Route: 042
     Dates: start: 20090418, end: 20090421

REACTIONS (4)
  - KLEBSIELLA INFECTION [None]
  - PNEUMONIA [None]
  - PRODUCT CONTAMINATION MICROBIAL [None]
  - PYREXIA [None]
